FAERS Safety Report 23633400 (Version 1)
Quarter: 2024Q1

REPORT INFORMATION
  Report Type: Spontaneous
  Country: DE (occurrence: DE)
  Receive Date: 20240314
  Receipt Date: 20240314
  Transmission Date: 20240409
  Serious: Yes (Other)
  Sender: FDA-Public Use
  Company Number: DE-AMK-271051

PATIENT
  Age: 82 Year
  Sex: Female
  Weight: 52 kg

DRUGS (6)
  1. PAXLOVID [Suspect]
     Active Substance: NIRMATRELVIR\RITONAVIR
     Indication: COVID-19 treatment
     Dosage: 3 DF, SINGLE
     Route: 048
     Dates: start: 20231127, end: 20231127
  2. SYMBICORT [Concomitant]
     Active Substance: BUDESONIDE\FORMOTEROL FUMARATE DIHYDRATE
  3. ROSUVASTATIN [Concomitant]
     Active Substance: ROSUVASTATIN
  4. VALSARTAN [Concomitant]
     Active Substance: VALSARTAN
  5. ASPIRIN [Concomitant]
     Active Substance: ASPIRIN
  6. METOPROLOL SUCCINATE [Concomitant]
     Active Substance: METOPROLOL SUCCINATE

REACTIONS (2)
  - Arrhythmia [Recovering/Resolving]
  - Atrial fibrillation [Recovering/Resolving]

NARRATIVE: CASE EVENT DATE: 20231127
